FAERS Safety Report 4773891-2 (Version None)
Quarter: 2005Q3

REPORT INFORMATION
  Report Type: 
  Country: None (occurrence: None)
  Receive Date: 20050920
  Receipt Date: 20050914
  Transmission Date: 20060218
  Serious: Yes (Other)
  Sender: FDA-Public Use
  Company Number: PHBS2005CA13596

PATIENT
  Age: 33 Year
  Sex: Male

DRUGS (2)
  1. RITALIN [Suspect]
     Indication: ATTENTION DEFICIT/HYPERACTIVITY DISORDER
     Dosage: 20 MG, TID
     Route: 048
     Dates: start: 20050720, end: 20050913
  2. RITALIN [Suspect]
     Dosage: 20 MG, TID
     Route: 048
     Dates: start: 20050915

REACTIONS (3)
  - CHEST PAIN [None]
  - COSTOCHONDRITIS [None]
  - PARAESTHESIA [None]
